FAERS Safety Report 4750564-3 (Version None)
Quarter: 2005Q3

REPORT INFORMATION
  Report Type: 
  Country: None (occurrence: None)
  Receive Date: 20050823
  Receipt Date: 20050804
  Transmission Date: 20060218
  Serious: Yes (Hospitalization)
  Sender: FDA-Public Use
  Company Number: JP-SANOFI-SYNTHELABO-A01200505426

PATIENT
  Age: 80 Year
  Sex: Female

DRUGS (9)
  1. MYSLEE [Suspect]
     Indication: DRUG USE FOR UNKNOWN INDICATION
     Dosage: 5 MG
     Route: 048
     Dates: start: 20050617, end: 20050804
  2. TEGRETOL [Suspect]
     Dosage: 200 MG
     Route: 048
     Dates: start: 20050620, end: 20050804
  3. GASTER [Suspect]
     Dosage: 20 MG
     Route: 048
     Dates: start: 20050623, end: 20050802
  4. TRYPTANOL [Suspect]
     Dosage: 10 MG
     Route: 048
     Dates: start: 20050802, end: 20050803
  5. RENIVACE [Suspect]
     Dosage: 5 MG
     Route: 048
  6. MAGMITT [Concomitant]
     Indication: DRUG USE FOR UNKNOWN INDICATION
     Dosage: UNK
     Route: 048
  7. FURUSEMIDE [Concomitant]
     Indication: DRUG USE FOR UNKNOWN INDICATION
     Dosage: UNK
     Route: 048
  8. AMLODIN [Concomitant]
     Indication: DRUG USE FOR UNKNOWN INDICATION
     Dosage: 5 MG
     Route: 048
  9. CLARITIN [Concomitant]
     Indication: DRUG USE FOR UNKNOWN INDICATION
     Dosage: UNK
     Route: 048

REACTIONS (1)
  - AGRANULOCYTOSIS [None]
